FAERS Safety Report 5846254-6 (Version None)
Quarter: 2008Q3

REPORT INFORMATION
  Report Type: 
  Country: None (occurrence: None)
  Receive Date: 20080813
  Receipt Date: 20080811
  Transmission Date: 20090109
  Serious: Yes (Hospitalization)
  Sender: FDA-Public Use
  Company Number: 2008SP015502

PATIENT
  Age: 63 Year
  Sex: Male

DRUGS (2)
  1. PEG-INTRON [Suspect]
     Indication: HEPATITIS C
     Dates: start: 20060601
  2. REBETOL [Suspect]
     Indication: HEPATITIS C
     Dates: start: 20060601

REACTIONS (8)
  - ANOREXIA [None]
  - ATROPHY [None]
  - AUTOIMMUNE DISORDER [None]
  - DEPRESSION [None]
  - HYPONATRAEMIA [None]
  - HYPOTHALAMO-PITUITARY DISORDER [None]
  - ISOLATED ADRENOCORTICOTROPIC HORMONE DEFICIENCY [None]
  - MALAISE [None]
